FAERS Safety Report 4393120-1 (Version None)
Quarter: 2004Q3

REPORT INFORMATION
  Report Type: 
  Country: None (occurrence: None)
  Receive Date: 20040706
  Receipt Date: 20040601
  Transmission Date: 20050211
  Serious: Yes (Life-Threatening, Hospitalization)
  Sender: FDA-Public Use
  Company Number: US-BRISTOL-MYERS SQUIBB COMPANY-12600771

PATIENT
  Age: 57 Year
  Sex: Male
  Weight: 108 kg

DRUGS (3)
  1. VP-16 [Suspect]
     Indication: PROSTATE CANCER
     Dosage: 1 CYCLE
     Route: 048
     Dates: start: 20040510, end: 20040523
  2. TAXOL [Suspect]
     Indication: PROSTATE CANCER
     Route: 042
     Dates: start: 20040511, end: 20040511
  3. EMCYT [Suspect]
     Indication: PROSTATE CANCER
     Dosage: 1 CYCLE 140 MG: 2 TID
     Route: 048
     Dates: start: 20040510, end: 20040523

REACTIONS (3)
  - HYDRONEPHROSIS [None]
  - INFECTION [None]
  - URINARY RETENTION [None]
